FAERS Safety Report 21255510 (Version 1)
Quarter: 2022Q3

REPORT INFORMATION
  Report Type: Report from Study
  Country: ES (occurrence: ES)
  Receive Date: 20220825
  Receipt Date: 20220825
  Transmission Date: 20221026
  Serious: Yes (Life-Threatening, Hospitalization, Other)
  Sender: FDA-Public Use
  Company Number: ES-TAKEDA-2022TUS058885

PATIENT
  Age: 82 Year
  Sex: Male

DRUGS (27)
  1. ICATIBANT [Suspect]
     Active Substance: ICATIBANT ACETATE
     Indication: Hereditary angioedema
     Dosage: UNK
     Route: 065
     Dates: start: 20110415
  2. ICATIBANT [Suspect]
     Active Substance: ICATIBANT ACETATE
     Indication: Hereditary angioedema
     Dosage: UNK
     Route: 065
     Dates: start: 20110415
  3. ICATIBANT [Suspect]
     Active Substance: ICATIBANT ACETATE
     Dosage: UNK
     Route: 065
     Dates: start: 2020
  4. ICATIBANT [Suspect]
     Active Substance: ICATIBANT ACETATE
     Dosage: UNK
     Route: 065
     Dates: start: 2020
  5. DANAZOL [Concomitant]
     Active Substance: DANAZOL
     Indication: Prophylaxis
     Dosage: 100 MILLIGRAM, QD
     Route: 048
  6. DANAZOL [Concomitant]
     Active Substance: DANAZOL
     Dosage: 100 MILLIGRAM, QD
     Route: 048
     Dates: start: 20160517
  7. CALCIUM CARBONATE\CHOLECALCIFEROL [Concomitant]
     Active Substance: CALCIUM CARBONATE\CHOLECALCIFEROL
     Indication: Calcium deficiency
     Dosage: 600 MILLIGRAM, QD
     Route: 048
  8. CALCIUM CARBONATE\CHOLECALCIFEROL [Concomitant]
     Active Substance: CALCIUM CARBONATE\CHOLECALCIFEROL
     Indication: Vitamin D deficiency
  9. SINTROM [Concomitant]
     Active Substance: ACENOCOUMAROL
     Indication: Coagulopathy
     Dosage: 1 MILLIGRAM, QD
     Route: 048
  10. HYDROCHLOROTHIAZIDE [Concomitant]
     Active Substance: HYDROCHLOROTHIAZIDE
     Indication: Blood pressure increased
     Dosage: 50 MILLIGRAM, QD
     Route: 048
     Dates: end: 20170725
  11. HYDROCHLOROTHIAZIDE [Concomitant]
     Active Substance: HYDROCHLOROTHIAZIDE
     Indication: Hypertension
     Dosage: 25 MILLIGRAM, QD
     Route: 048
  12. OMEPRAZOLE [Concomitant]
     Active Substance: OMEPRAZOLE
     Indication: Product used for unknown indication
     Dosage: 20 MILLIGRAM, QD
     Route: 048
  13. DUTASTERIDE\TAMSULOSIN [Concomitant]
     Active Substance: DUTASTERIDE\TAMSULOSIN
     Indication: Hypertrophy
     Dosage: UNK UNK, QD
     Route: 048
  14. SERTRALINE [Concomitant]
     Active Substance: SERTRALINE HYDROCHLORIDE
     Indication: Depression
     Dosage: 50 MILLIGRAM, QD
     Route: 048
  15. ATORVASTATIN [Concomitant]
     Active Substance: ATORVASTATIN
     Indication: Dyslipidaemia
     Dosage: 10 MILLIGRAM, QD
     Route: 048
  16. AMLODIPINE [Concomitant]
     Active Substance: AMLODIPINE BESYLATE
     Indication: Product used for unknown indication
     Dosage: 5 MILLIGRAM, QD
     Route: 048
  17. LORMETAZEPAM [Concomitant]
     Active Substance: LORMETAZEPAM
     Indication: Insomnia
     Dosage: 2 MILLIGRAM, QD
     Route: 048
  18. STANOZOLOL [Concomitant]
     Active Substance: STANOZOLOL
     Indication: Prophylaxis
     Dosage: 2 MILLIGRAM, QD
     Route: 048
     Dates: start: 20141209, end: 20151110
  19. STANOZOLOL [Concomitant]
     Active Substance: STANOZOLOL
     Dosage: 1 MILLIGRAM, QD
     Route: 048
     Dates: start: 20151110, end: 20160517
  20. AMOXICILLIN [Concomitant]
     Active Substance: AMOXICILLIN
     Indication: Bacterial infection
     Dosage: UNK UNK, TID
     Route: 048
     Dates: start: 20170911, end: 20170916
  21. DEXKETOPROFEN TROMETAMOL [Concomitant]
     Active Substance: DEXKETOPROFEN TROMETAMOL
     Indication: Toothache
     Dosage: 25 MILLIGRAM, TID
     Route: 048
     Dates: start: 20170911
  22. AMOXICILLIN\CLAVULANATE POTASSIUM [Concomitant]
     Active Substance: AMOXICILLIN\CLAVULANATE POTASSIUM
     Indication: Maxillofacial operation
     Dosage: 875 MILLIGRAM, Q8HR
     Dates: start: 20180417, end: 20180422
  23. METAMIZOL [Concomitant]
     Active Substance: METAMIZOLE SODIUM
     Indication: Maxillofacial operation
     Dosage: 575 MILLIGRAM, Q8HR
     Route: 048
     Dates: start: 20180417, end: 201804
  24. ACETAMINOPHEN [Concomitant]
     Active Substance: ACETAMINOPHEN
     Indication: Maxillofacial operation
     Dosage: 1 GRAM, Q8HR
     Route: 048
     Dates: start: 20180417, end: 201804
  25. ENOXAPARIN [Concomitant]
     Active Substance: ENOXAPARIN
     Indication: Cardiac disorder
     Dosage: 40 MILLIGRAM, QD
     Route: 058
     Dates: start: 20190222, end: 20190301
  26. TRAMADOL [Concomitant]
     Active Substance: TRAMADOL
     Indication: Thoracic operation
     Dosage: 50 MILLIGRAM, Q8HR
     Route: 048
     Dates: start: 20190227, end: 2019
  27. VITAMIN D [Concomitant]
     Active Substance: VITAMIN D NOS
     Indication: Vitamin D deficiency
     Dosage: 0.266 MILLIGRAM, MONTHLY
     Route: 048
     Dates: start: 2020

REACTIONS (5)
  - Rib fracture [Recovered/Resolved]
  - Urinary tract infection bacterial [Recovered/Resolved]
  - Intestinal obstruction [Recovered/Resolved]
  - Respiratory tract infection [Recovered/Resolved]
  - Benign prostatic hyperplasia [Recovered/Resolved]

NARRATIVE: CASE EVENT DATE: 20150220
